FAERS Safety Report 15413135 (Version 1)
Quarter: 2018Q3

REPORT INFORMATION
  Report Type: Spontaneous
  Country: GB (occurrence: GB)
  Receive Date: 20180921
  Receipt Date: 20180921
  Transmission Date: 20181010
  Serious: Yes (Other)
  Sender: FDA-Public Use
  Company Number: GB-PFIZER INC-2018375798

PATIENT
  Age: 42 Year
  Sex: Male
  Weight: 75 kg

DRUGS (2)
  1. PREGABALIN. [Suspect]
     Active Substance: PREGABALIN
     Indication: ANXIETY
     Dosage: 600 MG, 1X/DAY (TAPERED TO 25MG.)
     Route: 048
     Dates: start: 20130401, end: 20161122
  2. TRANYLCYPROMINE [Interacting]
     Active Substance: TRANYLCYPROMINE
     Indication: DEPRESSION SUICIDAL
     Dosage: 50 MG, 1X/DAY
     Route: 048
     Dates: start: 20120801, end: 20141015

REACTIONS (8)
  - Drug interaction [Unknown]
  - Alcohol interaction [Unknown]
  - Tachyphrenia [Recovered/Resolved]
  - Euphoric mood [Recovered/Resolved]
  - Impulsive behaviour [Recovered/Resolved]
  - Disinhibition [Recovered/Resolved]
  - Hypomania [Recovered/Resolved]
  - Mood swings [Unknown]

NARRATIVE: CASE EVENT DATE: 20130401
